FAERS Safety Report 8600059-1 (Version None)
Quarter: 2012Q3

REPORT INFORMATION
  Report Type: 
  Country: None (occurrence: None)
  Receive Date: 20120816
  Receipt Date: 20110915
  Transmission Date: 20120928
  Serious: Yes (Other)
  Sender: FDA-Public Use
  Company Number: PHHY2009CA24451

PATIENT
  Sex: Female

DRUGS (2)
  1. SANDOSTATIN LAR [Suspect]
     Indication: METASTATIC CARCINOID TUMOUR
     Dosage: 30 MG EVERY 4 WEEKS
     Route: 030
     Dates: start: 20090612
  2. SANDOSTATIN LAR [Suspect]
     Dosage: 40 MG,EVERY 4 WEEKS
     Route: 030

REACTIONS (17)
  - INTESTINAL MASS [None]
  - OSTEOCHONDRITIS [None]
  - FLATULENCE [None]
  - DIPLOPIA [None]
  - HYPERHIDROSIS [None]
  - FEELING HOT [None]
  - DRY MOUTH [None]
  - BLOOD PRESSURE SYSTOLIC INCREASED [None]
  - OCULAR NEOPLASM [None]
  - INJECTION SITE HAEMATOMA [None]
  - PALPITATIONS [None]
  - PRURITUS [None]
  - OCULAR DISCOMFORT [None]
  - OCULAR HYPERAEMIA [None]
  - INJECTION SITE PAIN [None]
  - ANXIETY [None]
  - RADIAL PULSE INCREASED [None]
